FAERS Safety Report 15297354 (Version 1)
Quarter: 2018Q3

REPORT INFORMATION
  Report Type: Spontaneous
  Country: JP (occurrence: JP)
  Receive Date: 20180820
  Receipt Date: 20180820
  Transmission Date: 20181010
  Serious: Yes (Death)
  Sender: FDA-Public Use
  Company Number: JP-CORDEN PHARMA LATINA S.P.A.-JP-2018COR000070

PATIENT

DRUGS (16)
  1. CISPLATIN. [Suspect]
     Active Substance: CISPLATIN
     Dosage: UNK, 1 CYCLE
  2. IFOSFAMIDE. [Suspect]
     Active Substance: IFOSFAMIDE
     Indication: GERM CELL NEOPLASM
     Dosage: UNK, 4 CYCLES
     Route: 065
  3. IRINOTECAN [Concomitant]
     Active Substance: IRINOTECAN
     Dosage: UNK, 1 CYCLE
  4. IRINOTECAN [Concomitant]
     Active Substance: IRINOTECAN
     Indication: GERM CELL NEOPLASM
     Dosage: UNK, 9 CYCLES
  5. CISPLATIN. [Suspect]
     Active Substance: CISPLATIN
     Dosage: UNK, 4 CYCLES
     Route: 065
  6. CISPLATIN. [Suspect]
     Active Substance: CISPLATIN
     Dosage: UNK, 9 CYCLES
     Route: 065
  7. NEDAPLATIN [Suspect]
     Active Substance: NEDAPLATIN
     Indication: GERM CELL NEOPLASM
     Dosage: UNK, 2 CYCLES
     Route: 065
  8. GEMCITABINE [Concomitant]
     Active Substance: GEMCITABINE\GEMCITABINE HYDROCHLORIDE
     Indication: GERM CELL NEOPLASM
     Dosage: UNK, 1 CYCLE
  9. IFOSFAMIDE. [Suspect]
     Active Substance: IFOSFAMIDE
     Dosage: UNK, 2 CYCLES
  10. NEDAPLATIN [Suspect]
     Active Substance: NEDAPLATIN
     Dosage: UNK, 1 CYCLE
     Route: 065
  11. PACLITAXEL. [Concomitant]
     Active Substance: PACLITAXEL
     Dosage: UNK, 1 CYCLE
  12. PACLITAXEL. [Concomitant]
     Active Substance: PACLITAXEL
     Indication: GERM CELL NEOPLASM
     Dosage: UNK, 2 CYCLES
  13. CISPLATIN. [Suspect]
     Active Substance: CISPLATIN
     Indication: GERM CELL NEOPLASM
     Dosage: 40 MG/M2, DAY 1?5, 2 CYCLES
     Route: 065
  14. ETOPOSIDE. [Suspect]
     Active Substance: ETOPOSIDE
     Indication: GERM CELL NEOPLASM
     Dosage: 200 MG/M2, DAY 1?5, 2 CYCLES
     Route: 065
  15. ETOPOSIDE. [Suspect]
     Active Substance: ETOPOSIDE
     Dosage: UNK, 4 CYCLES
     Route: 065
  16. BLEOMYCIN [Concomitant]
     Active Substance: BLEOMYCIN SULFATE
     Indication: GERM CELL CANCER
     Dosage: 15 MG/M2, WEEKLY, 2 CYCLES

REACTIONS (1)
  - Myelodysplastic syndrome [Fatal]
